FAERS Safety Report 9275075 (Version 1)
Quarter: 2013Q2

REPORT INFORMATION
  Report Type: Spontaneous
  Country: US (occurrence: US)
  Receive Date: 20130507
  Receipt Date: 20130507
  Transmission Date: 20140414
  Serious: Yes (Other)
  Sender: FDA-Public Use
  Company Number: US-PFIZER INC-2013140908

PATIENT
  Age: 38 Year
  Sex: Male
  Weight: 89 kg

DRUGS (11)
  1. NEURONTIN [Suspect]
     Indication: CONVULSION PROPHYLAXIS
     Dosage: 4800 MG, 1X/DAY
     Dates: start: 1998
  2. NEURONTIN [Suspect]
     Indication: BURNING SENSATION
  3. PREVACID [Suspect]
     Indication: DYSPEPSIA
     Dosage: 30 MG, 2X/DAY
     Dates: start: 1998
  4. LISINOPRIL [Concomitant]
     Dosage: 20 MG, 1X/DAY
     Route: 048
  5. NITROGLYCERIN [Concomitant]
     Indication: CHEST PAIN
     Dosage: UNK
     Route: 048
  6. ISOSORBIDE MONONITRATE [Concomitant]
     Dosage: 30MG DAILY
  7. METOPROLOL TARTRATE [Concomitant]
     Dosage: 30MG DAILY
  8. CLOPIDOGREL BISULFATE [Concomitant]
     Dosage: 75MG DAILY
  9. ACETYLSALICYLIC ACID [Concomitant]
     Dosage: 81MG DAILY
  10. SIMVASTATIN [Concomitant]
     Dosage: UNK
  11. MORPHINE [Concomitant]
     Dosage: UNK

REACTIONS (8)
  - Myocardial infarction [Unknown]
  - Foreign body [Unknown]
  - Hiatus hernia [Unknown]
  - Drug ineffective [Unknown]
  - Dyspepsia [Unknown]
  - Middle insomnia [Unknown]
  - Insomnia [Unknown]
  - Gastrooesophageal reflux disease [Unknown]
